FAERS Safety Report 4589486-X (Version None)
Quarter: 2005Q1

REPORT INFORMATION
  Report Type: 
  Country: None (occurrence: None)
  Receive Date: 20050216
  Receipt Date: 20050207
  Transmission Date: 20050727
  Serious: Yes (Hospitalization)
  Sender: FDA-Public Use
  Company Number: HQWYE397505JAN05

PATIENT
  Age: 19 Year
  Sex: Female

DRUGS (5)
  1. TRIONETTA (LEVONORGESTREL/ ETHINYL ESTRADIOL / INERT, TABLET) [Suspect]
     Indication: DYSMENORRHOEA
     Dosage: 1 TABLET 1X PER 1 DAY ORAL
     Route: 048
     Dates: start: 19980210, end: 20040727
  2. TAVEGYL (CLEMASTINE) [Concomitant]
  3. TELDANEX (TERFENADINE) [Concomitant]
  4. TENORMIN [Concomitant]
  5. BETAPRED [Concomitant]

REACTIONS (2)
  - PULMONARY EMBOLISM [None]
  - TACHYCARDIA [None]
